FAERS Safety Report 5766848-6 (Version None)
Quarter: 2008Q2

REPORT INFORMATION
  Report Type: 
  Country: None (occurrence: None)
  Receive Date: 20080612
  Receipt Date: 20080603
  Transmission Date: 20081010
  Serious: Yes (Life-Threatening, Hospitalization, Other)
  Sender: FDA-Public Use
  Company Number: GB-TEVA-172586ISR

PATIENT
  Age: 14 Year
  Sex: Male

DRUGS (1)
  1. PREDNISOLONE [Suspect]
     Indication: B-CELL LYMPHOMA
     Dates: start: 19970101

REACTIONS (2)
  - BLADDER TELANGIECTASIA [None]
  - HAEMATURIA [None]
